FAERS Safety Report 6249296-4 (Version None)
Quarter: 2009Q2

REPORT INFORMATION
  Report Type: 
  Country: None (occurrence: None)
  Receive Date: 20090629
  Receipt Date: 20090424
  Transmission Date: 20091009
  Serious: Yes (Hospitalization)
  Sender: FDA-Public Use
  Company Number: US-BRISTOL-MYERS SQUIBB COMPANY-14600621

PATIENT
  Age: 67 Year
  Sex: Male
  Weight: 87 kg

DRUGS (4)
  1. SPRYCEL [Suspect]
     Indication: CHRONIC MYELOID LEUKAEMIA
     Dosage: STOPPED OCT07, RESTARTED SPRYCEL 50MG QD IN NOV08; DOSE INCREASED TO 100MG QD IN JAN09.
     Dates: start: 20080701, end: 20090101
  2. CITALOPRAM [Concomitant]
  3. LISINOPRIL [Concomitant]
  4. NIASPAN [Concomitant]

REACTIONS (2)
  - SWELLING FACE [None]
  - THROAT TIGHTNESS [None]
